FAERS Safety Report 24416383 (Version 1)
Quarter: 2024Q4

REPORT INFORMATION
  Report Type: Spontaneous
  Country: CA (occurrence: CA)
  Receive Date: 20241009
  Receipt Date: 20241009
  Transmission Date: 20250115
  Serious: Yes (Life-Threatening, Hospitalization, Other)
  Sender: PFIZER
  Company Number: CA-PFIZER INC-202400271607

PATIENT
  Age: 8 Year
  Sex: Female
  Weight: 17 kg

DRUGS (15)
  1. METHYLPREDNISOLONE ACETATE [Suspect]
     Active Substance: METHYLPREDNISOLONE ACETATE
     Indication: Multisystem inflammatory syndrome in children
     Route: 065
  2. ASPIRIN [Suspect]
     Active Substance: ASPIRIN
     Indication: Multisystem inflammatory syndrome in children
     Route: 065
  3. GAMMAGARD LIQUID [Suspect]
     Active Substance: HUMAN IMMUNOGLOBULIN G
     Indication: Multisystem inflammatory syndrome in children
     Dosage: UNK
     Route: 042
  4. GAMMAGARD LIQUID [Suspect]
     Active Substance: HUMAN IMMUNOGLOBULIN G
     Indication: Kawasaki^s disease
     Dosage: 5 G
     Route: 042
  5. ACETAMINOPHEN [Concomitant]
     Active Substance: ACETAMINOPHEN
     Dosage: 9.8 ML
  6. ASPIRIN [Concomitant]
     Active Substance: ASPIRIN
     Dosage: 80 MG, 1X/DAY
     Route: 048
  7. IBUPROFEN [Concomitant]
     Active Substance: IBUPROFEN
     Dosage: 5 MG/KG, 4 EVERY 1 DAY
     Route: 048
  8. AMMONIUM CHLORIDE/DIPHENHYDRAMINE HYDROCHLORIDE/SODIUM BENZOATE/SODIUM [Concomitant]
     Indication: Anaphylactic reaction
     Dosage: 21.25 MG
     Route: 042
  9. AMOXICILLIN TRIHYDRATE [Concomitant]
     Active Substance: AMOXICILLIN
     Dosage: 290 MG, 3X/DAY
     Route: 048
  10. DEXTROSE\WATER [Concomitant]
     Active Substance: DEXTROSE\WATER
     Dosage: 500 ML
     Route: 042
  11. EPINEPHRINE HYDROCHLORIDE [Concomitant]
     Active Substance: EPINEPHRINE HYDROCHLORIDE
     Dosage: 0.17 MG
     Route: 030
  12. EPIPEN JR [Concomitant]
     Active Substance: EPINEPHRINE
     Dosage: 0.15 MG
     Route: 030
  13. HYDROCORTISONE SODIUM PHOSPHATE [Concomitant]
     Active Substance: HYDROCORTISONE SODIUM PHOSPHATE
     Dosage: 85 MG
     Route: 042
  14. IBUPROFEN [Concomitant]
     Active Substance: IBUPROFEN
     Dosage: 8.5 ML
  15. TYLENOL [Concomitant]
     Active Substance: ACETAMINOPHEN
     Dosage: 256 MG, EVERY 4 HOURS
     Route: 048

REACTIONS (3)
  - Haemolysis [Recovered/Resolved]
  - Drug ineffective for unapproved indication [Recovered/Resolved]
  - Off label use [Unknown]
